FAERS Safety Report 6241474-3 (Version None)
Quarter: 2009Q2

REPORT INFORMATION
  Report Type: 
  Country: None (occurrence: None)
  Receive Date: 20090623
  Receipt Date: 20051115
  Transmission Date: 20091009
  Serious: Yes (Life-Threatening, Hospitalization)
  Sender: FDA-Public Use
  Company Number: BR-ROCHE-344204

PATIENT
  Sex: Male
  Weight: 64 kg

DRUGS (75)
  1. DACLIZUMAB [Suspect]
     Route: 042
     Dates: start: 20030530
  2. DACLIZUMAB [Suspect]
     Dosage: FOR FOUR DOSES. DOSES GIVEN ON 15 JUNE 2003, 30 JUNE 2003, 11 JULY 2003 AND 29 JULY 2003.
     Route: 042
     Dates: start: 20030615, end: 20030729
  3. MYCOPHENOLATE MOFETIL [Suspect]
     Route: 048
     Dates: start: 20030530
  4. MYCOPHENOLATE MOFETIL [Suspect]
     Route: 048
     Dates: start: 20030606
  5. MYCOPHENOLATE MOFETIL [Suspect]
     Route: 048
     Dates: start: 20030609
  6. MYCOPHENOLATE MOFETIL [Suspect]
     Route: 048
     Dates: start: 20030611
  7. MYCOPHENOLATE MOFETIL [Suspect]
     Route: 048
     Dates: start: 20030628
  8. MYCOPHENOLATE MOFETIL [Suspect]
     Route: 048
     Dates: start: 20030702
  9. MYCOPHENOLATE MOFETIL [Suspect]
     Route: 048
     Dates: start: 20030708, end: 20030813
  10. MYCOPHENOLATE MOFETIL [Suspect]
     Route: 048
     Dates: start: 20030819, end: 20040517
  11. MYCOPHENOLATE MOFETIL [Suspect]
     Route: 048
     Dates: start: 20040901
  12. TACROLIMUS [Suspect]
     Route: 048
     Dates: start: 20030530
  13. TACROLIMUS [Suspect]
     Route: 048
     Dates: start: 20030610
  14. TACROLIMUS [Suspect]
     Route: 048
     Dates: start: 20030627
  15. TACROLIMUS [Suspect]
     Route: 048
     Dates: start: 20030722
  16. TACROLIMUS [Suspect]
     Route: 048
     Dates: start: 20030811
  17. TACROLIMUS [Suspect]
     Route: 048
     Dates: start: 20030903
  18. TACROLIMUS [Suspect]
     Route: 048
     Dates: start: 20031113
  19. TACROLIMUS [Suspect]
     Route: 048
     Dates: start: 20040129, end: 20040517
  20. METHYLPREDNISOLONE [Suspect]
     Route: 042
     Dates: start: 20030530
  21. PREDNISONE [Suspect]
     Route: 048
     Dates: start: 20030531
  22. PREDNISONE [Suspect]
     Route: 048
     Dates: start: 20030607
  23. PREDNISONE [Suspect]
     Route: 048
     Dates: start: 20030614
  24. PREDNISONE [Suspect]
     Route: 048
     Dates: start: 20030621
  25. PREDNISONE [Suspect]
     Route: 048
     Dates: start: 20030628
  26. PREDNISONE [Suspect]
     Route: 048
     Dates: start: 20030705
  27. PREDNISONE [Suspect]
     Route: 048
     Dates: start: 20030718
  28. PREDNISONE [Suspect]
     Route: 048
     Dates: start: 20030729
  29. PREDNISONE [Suspect]
     Route: 048
     Dates: start: 20030809
  30. PREDNISONE [Suspect]
     Route: 048
     Dates: start: 20031113
  31. PREDNISONE [Suspect]
     Route: 048
     Dates: start: 20040603
  32. ATENOLOL [Concomitant]
     Route: 048
     Dates: start: 20030531
  33. ATENOLOL [Concomitant]
     Route: 048
     Dates: start: 20030701
  34. INSULINE NPH [Concomitant]
     Route: 050
     Dates: start: 20030606
  35. INSULINE NPH [Concomitant]
     Route: 050
     Dates: start: 20030613
  36. INSULINE NPH [Concomitant]
     Route: 050
     Dates: start: 20030615
  37. INSULINE NPH [Concomitant]
     Route: 050
     Dates: start: 20030620
  38. INSULINE NPH [Concomitant]
     Route: 050
     Dates: start: 20030621
  39. INSULINE NPH [Concomitant]
     Route: 050
     Dates: start: 20030708
  40. INSULINE NPH [Concomitant]
     Route: 050
     Dates: start: 20030710
  41. INSULINE NPH [Concomitant]
     Route: 050
     Dates: start: 20030805
  42. INSULINE NPH [Concomitant]
     Route: 050
     Dates: start: 20030811
  43. INSULINE NPH [Concomitant]
     Route: 050
     Dates: start: 20030924
  44. INSULINE NPH [Concomitant]
     Route: 050
     Dates: start: 20031029
  45. INSULINE NPH [Concomitant]
     Dosage: ROUTE: PV
     Route: 050
     Dates: start: 20031031
  46. INSULINE NPH [Concomitant]
     Route: 050
     Dates: start: 20040108
  47. INSULINE NPH [Concomitant]
     Route: 050
     Dates: start: 20040129
  48. INSULINE NPH [Concomitant]
     Route: 050
     Dates: start: 20040304
  49. INSULINE NPH [Concomitant]
     Route: 050
     Dates: start: 20040517
  50. INSULINE NPH [Concomitant]
     Route: 050
     Dates: start: 20040531
  51. INSULINE NPH [Concomitant]
     Route: 050
     Dates: start: 20040601
  52. INSULINE NPH [Concomitant]
     Route: 050
     Dates: start: 20040603
  53. INSULINE NPH [Concomitant]
     Dosage: ROUTE: ORAL, PO
     Route: 050
     Dates: start: 20040604
  54. INSULINE NPH [Concomitant]
     Route: 050
     Dates: start: 20040607
  55. INSULINE NPH [Concomitant]
     Route: 050
     Dates: start: 20040610
  56. INSULINE NPH [Concomitant]
     Dosage: START DATE: 15 JUNE
     Route: 050
  57. INSULINE NPH [Concomitant]
     Route: 050
     Dates: start: 20040616
  58. INSULINE NPH [Concomitant]
     Route: 050
     Dates: start: 20040621
  59. SULFA-TRIMETHOPRIM [Concomitant]
     Dosage: FROM 5 NOVEMBER 2003: 800MG TID; FROM 29 APRIL 2004: 800MG BID.
     Route: 048
     Dates: start: 20031105, end: 20040530
  60. FUROSEMIDE [Concomitant]
  61. FERROUS SULFATE TAB [Concomitant]
  62. FOLIC ACID [Concomitant]
  63. COMPLEX B [Concomitant]
  64. OMEPRAZOLE [Concomitant]
  65. POLARAMINE [Concomitant]
     Dates: start: 20031025, end: 20031025
  66. CEFAZOLIN [Concomitant]
     Route: 042
     Dates: start: 20030530, end: 20030602
  67. CIPROFLOXACIN [Concomitant]
     Route: 042
     Dates: start: 20030530
  68. CIPROFLOXACIN [Concomitant]
     Route: 048
     Dates: start: 20030602, end: 20030614
  69. EPOGEN [Concomitant]
     Route: 058
     Dates: start: 20030605, end: 20030722
  70. EPOGEN [Concomitant]
     Route: 058
     Dates: start: 20040604, end: 20040616
  71. GANCICLOVIR [Concomitant]
     Route: 042
     Dates: start: 20030530
  72. GANCICLOVIR [Concomitant]
     Route: 042
     Dates: start: 20030531, end: 20030620
  73. GANCICLOVIR [Concomitant]
     Route: 042
     Dates: start: 20040517, end: 20040524
  74. NIFEDIPINE [Concomitant]
     Route: 048
     Dates: start: 20030531, end: 20030610
  75. NIFEDIPINE [Concomitant]
     Route: 048
     Dates: start: 20030813, end: 20030815

REACTIONS (4)
  - HEADACHE [None]
  - MENINGITIS CRYPTOCOCCAL [None]
  - PNEUMONIA [None]
  - URINARY TRACT INFECTION [None]
